FAERS Safety Report 8559997 (Version 4)
Quarter: 2014Q1

REPORT INFORMATION
  Report Type: Spontaneous
  Country: CA (occurrence: CA)
  Receive Date: 20120514
  Receipt Date: 20140206
  Transmission Date: 20141002
  Serious: Yes (Other)
  Sender: FDA-Public Use
  Company Number: CA-PFIZER INC-2012114424

PATIENT
  Age: 40 Year
  Sex: Female

DRUGS (2)
  1. SOMAVERT [Suspect]
     Indication: ACROMEGALY
     Dosage: 10 MG, 1X/DAY
     Route: 058
     Dates: start: 20120308
  2. CRESTOR [Concomitant]
     Indication: HYPERTENSION
     Dosage: UNK
     Dates: start: 2005

REACTIONS (2)
  - Lipodystrophy acquired [Recovering/Resolving]
  - Weight increased [Not Recovered/Not Resolved]
